FAERS Safety Report 5093071-3 (Version None)
Quarter: 2006Q3

REPORT INFORMATION
  Report Type: 
  Country: None (occurrence: None)
  Receive Date: 20060830
  Receipt Date: 20060816
  Transmission Date: 20061208
  Serious: Yes (Hospitalization)
  Sender: FDA-Public Use
  Company Number: PHBS2006BR12510

PATIENT
  Age: 8 Year
  Sex: Female

DRUGS (1)
  1. TRILEPTAL [Suspect]
     Indication: MOTOR DYSFUNCTION
     Route: 048

REACTIONS (1)
  - CONVULSION [None]
